FAERS Safety Report 5009309-4 (Version None)
Quarter: 2006Q2

REPORT INFORMATION
  Report Type: 
  Country: None (occurrence: None)
  Receive Date: 20060524
  Receipt Date: 20060512
  Transmission Date: 20061013
  Serious: Yes (Hospitalization, Disabling, Other)
  Sender: FDA-Public Use
  Company Number: US-JNJFOC-20060204532

PATIENT
  Sex: Female
  Weight: 92.2 kg

DRUGS (28)
  1. REMICADE [Suspect]
     Route: 042
  2. REMICADE [Suspect]
     Route: 042
  3. REMICADE [Suspect]
     Route: 042
  4. REMICADE [Suspect]
     Indication: RHEUMATOID ARTHRITIS
     Route: 042
  5. MIRAPEX [Concomitant]
  6. MIRAPEX [Concomitant]
  7. ALBUTEROL SULFATE AUTOHALER [Concomitant]
     Dosage: SOLUTION
  8. ALBUTEROL SULFATE AUTOHALER [Concomitant]
     Dosage: INHALER
  9. OXYCODONE AND ACETAMINOPHEN [Concomitant]
  10. OXYCODONE AND ACETAMINOPHEN [Concomitant]
     Dosage: 5/325
  11. CLONAZEPAM [Concomitant]
  12. IBUPROFEN [Concomitant]
  13. PREDNISONE TAB [Concomitant]
  14. PHENAZOPYRIDINE [Concomitant]
  15. PRILOSEC [Concomitant]
  16. ZOLOFT [Concomitant]
  17. CIPRO [Concomitant]
  18. CIPRO [Concomitant]
  19. SULFAMETHOXAZOLE [Concomitant]
  20. MACROBID [Concomitant]
  21. ZYBAN [Concomitant]
  22. COMBIVENT [Concomitant]
  23. COMBIVENT [Concomitant]
  24. AMOX TR-K CLV [Concomitant]
  25. AMOX TR-K CLV [Concomitant]
     Dosage: 500-125 MG
  26. FUROSEMIDE [Concomitant]
  27. NAPROXEN [Concomitant]
  28. DOXYCYCLINE [Concomitant]

REACTIONS (32)
  - ANAEMIA [None]
  - ANXIETY [None]
  - BRONCHITIS ACUTE [None]
  - CHRONIC OBSTRUCTIVE PULMONARY DISEASE [None]
  - DEMYELINATING POLYNEUROPATHY [None]
  - DEPRESSION [None]
  - DIZZINESS [None]
  - DRUG INEFFECTIVE [None]
  - DYSPNOEA [None]
  - EUSTACHIAN TUBE OBSTRUCTION [None]
  - FACE OEDEMA [None]
  - FALL [None]
  - FATIGUE [None]
  - GUILLAIN-BARRE SYNDROME [None]
  - INFECTION [None]
  - INFLAMMATION [None]
  - INGROWING NAIL [None]
  - JOINT SPRAIN [None]
  - LYMPHADENOPATHY [None]
  - MENOPAUSE [None]
  - NASOPHARYNGITIS [None]
  - NEUROGENIC BLADDER [None]
  - OEDEMA PERIPHERAL [None]
  - PALPITATIONS [None]
  - PEAU D'ORANGE [None]
  - PNEUMONIA [None]
  - PYELONEPHRITIS [None]
  - SINUSITIS [None]
  - THORACIC OUTLET SYNDROME [None]
  - UPPER RESPIRATORY TRACT INFECTION [None]
  - URINARY TRACT INFECTION [None]
  - WEIGHT DECREASED [None]
